FAERS Safety Report 21440177 (Version 1)
Quarter: 2022Q4

REPORT INFORMATION
  Report Type: Report from Study
  Country: US (occurrence: US)
  Receive Date: 20221011
  Receipt Date: 20221011
  Transmission Date: 20230112
  Serious: No
  Sender: FDA-Public Use
  Company Number: US-ABBVIE-4146268

PATIENT
  Sex: Male

DRUGS (3)
  1. DUOPA [Suspect]
     Active Substance: CARBIDOPA\LEVODOPA
     Indication: Product used for unknown indication
     Dates: start: 20161214
  2. DUOPA [Suspect]
     Active Substance: CARBIDOPA\LEVODOPA
  3. SILVER NITRATE [Concomitant]
     Active Substance: SILVER NITRATE
     Indication: Stoma complication

REACTIONS (6)
  - Stoma site haemorrhage [Unknown]
  - Stoma site irritation [Unknown]
  - Stoma site hypergranulation [Unknown]
  - Stoma complication [Not Recovered/Not Resolved]
  - Stoma site discharge [Unknown]
  - Stoma site pain [Unknown]
